FAERS Safety Report 7553848-9 (Version None)
Quarter: 2011Q2

REPORT INFORMATION
  Report Type: 
  Country: None (occurrence: None)
  Receive Date: 20110617
  Receipt Date: 20110613
  Transmission Date: 20111010
  Serious: Yes (Hospitalization)
  Sender: FDA-Public Use
  Company Number: US-BRISTOL-MYERS SQUIBB COMPANY-15780646

PATIENT
  Age: 52 Year
  Sex: Female
  Weight: 119 kg

DRUGS (2)
  1. TAXOL [Suspect]
     Indication: NON-SMALL CELL LUNG CANCER
     Dates: start: 20110222, end: 20110504
  2. CARBOPLATIN [Suspect]
     Indication: NON-SMALL CELL LUNG CANCER
     Dosage: TOTAL DOSE RECEIVED: 900 MG
     Dates: start: 20110222, end: 20110504

REACTIONS (3)
  - WOUND INFECTION [None]
  - EMBOLISM [None]
  - DIVERTICULAR PERFORATION [None]
